FAERS Safety Report 7209852-3 (Version None)
Quarter: 2011Q1

REPORT INFORMATION
  Report Type: 
  Country: None (occurrence: None)
  Receive Date: 20110104
  Receipt Date: 20101221
  Transmission Date: 20110831
  Serious: Yes (Hospitalization)
  Sender: FDA-Public Use
  Company Number: CH-BAYER-2010-006155

PATIENT
  Age: 29 Year
  Sex: Female

DRUGS (4)
  1. CIPROXIN [Suspect]
     Dosage: UNK
     Dates: start: 20101121, end: 20101125
  2. IRFEN [Suspect]
     Indication: PAIN
     Dosage: UNK
     Dates: start: 20101121, end: 20101125
  3. NOVALGIN [Suspect]
     Indication: PAIN
     Dosage: 20 TABLETS WITHIN THREE MONTHS
     Route: 048
     Dates: start: 20100101, end: 20101120
  4. CELEBREX [Suspect]
     Indication: PAIN
     Dosage: UNK
     Route: 048
     Dates: start: 20101125, end: 20101125

REACTIONS (6)
  - PHARYNGITIS [None]
  - PYREXIA [None]
  - RENAL FAILURE ACUTE [None]
  - SINUSITIS [None]
  - AGRANULOCYTOSIS [None]
  - NORMOCHROMIC NORMOCYTIC ANAEMIA [None]
